FAERS Safety Report 8035650-7 (Version None)
Quarter: 2011Q4

REPORT INFORMATION
  Report Type: 
  Country: None (occurrence: None)
  Receive Date: 20111222
  Receipt Date: 20111214
  Transmission Date: 20120403
  Serious: Yes (Hospitalization)
  Sender: FDA-Public Use
  Company Number: DSA_48563_2011

PATIENT
  Age: 87 Year
  Sex: Female

DRUGS (6)
  1. DILTIAZEM HCL [Suspect]
     Indication: PRODUCT USED FOR UNKNOWN INDICATION
     Dosage: DF
     Dates: end: 20110504
  2. PANTOPRAZOLE [Suspect]
     Indication: PRODUCT USED FOR UNKNOWN INDICATION
     Dosage: DF
     Dates: end: 20110504
  3. BACTRIM [Suspect]
     Indication: PRODUCT USED FOR UNKNOWN INDICATION
     Dosage: DF
     Dates: start: 20110420, end: 20110425
  4. MOLSIDOMINE (MOLSIDOMINE) [Suspect]
     Indication: PRODUCT USED FOR UNKNOWN INDICATION
     Dosage: DF
     Dates: end: 20110504
  5. FLAGYL [Suspect]
     Indication: INFECTION PROPHYLAXIS
     Dosage: DF, 5 TIMES PER MONTH, ORAL
     Route: 048
     Dates: start: 20100801, end: 20110405
  6. ALDACTAZIDE [Suspect]
     Indication: PRODUCT USED FOR UNKNOWN INDICATION
     Dosage: DF
     Dates: end: 20110504

REACTIONS (2)
  - PYREXIA [None]
  - AGRANULOCYTOSIS [None]
